FAERS Safety Report 6373576-5 (Version None)
Quarter: 2009Q3

REPORT INFORMATION
  Report Type: 
  Country: None (occurrence: None)
  Receive Date: 20090924
  Receipt Date: 20090219
  Transmission Date: 20100115
  Serious: No
  Sender: FDA-Public Use
  Company Number: US-ASTRAZENECA-2009UW04757

PATIENT
  Age: 46 Year
  Sex: Female

DRUGS (1)
  1. SEROQUEL XR [Suspect]
     Indication: PARANOIA
     Dosage: UNKNOWN
     Route: 048

REACTIONS (2)
  - HEART RATE IRREGULAR [None]
  - TACHYCARDIA [None]
